FAERS Safety Report 7974708-5 (Version None)
Quarter: 2011Q4

REPORT INFORMATION
  Report Type: 
  Country: None (occurrence: None)
  Receive Date: 20111213
  Receipt Date: 20111205
  Transmission Date: 20120403
  Serious: Yes (Other)
  Sender: FDA-Public Use
  Company Number: US-ELI_LILLY_AND_COMPANY-US201110000597

PATIENT
  Sex: Female

DRUGS (4)
  1. EVISTA [Suspect]
     Dosage: 60 MG, UNK
     Route: 048
     Dates: start: 20081101, end: 20111011
  2. PROTONIX [Concomitant]
  3. VITAMIN D [Concomitant]
  4. ACETYLSALICYLIC ACID SRT [Concomitant]

REACTIONS (3)
  - ENDOMETRIAL DISORDER [None]
  - CERVICAL CYST [None]
  - OVARIAN CYST [None]
